FAERS Safety Report 10891634 (Version 4)
Quarter: 2015Q1

REPORT INFORMATION
  Report Type: Spontaneous
  Country: US (occurrence: US)
  Receive Date: 20150306
  Receipt Date: 20150327
  Transmission Date: 20150721
  Serious: Yes (Other)
  Sender: FDA-Public Use
  Company Number: PHEH2015US004038

PATIENT
  Sex: Female

DRUGS (1)
  1. DIOVAN [Suspect]
     Active Substance: VALSARTAN
     Indication: PRODUCT USED FOR UNKNOWN INDICATION
     Dosage: 40 MG, UNK
     Route: 065
     Dates: start: 20150212

REACTIONS (6)
  - Blood urine present [Unknown]
  - Dysphonia [Unknown]
  - Lyme disease [Unknown]
  - Blood pressure increased [Unknown]
  - Pleural effusion [Unknown]
  - Palpitations [Unknown]
